FAERS Safety Report 8062533-9 (Version None)
Quarter: 2012Q1

REPORT INFORMATION
  Report Type: 
  Country: None (occurrence: None)
  Receive Date: 20120123
  Receipt Date: 20120119
  Transmission Date: 20120608
  Serious: Yes (Hospitalization)
  Sender: FDA-Public Use
  Company Number: CH-SANOFI-AVENTIS-2012SA004117

PATIENT
  Sex: Female
  Weight: 60 kg

DRUGS (10)
  1. DIPYRONE TAB [Concomitant]
  2. BONIVA [Concomitant]
  3. ALLOPURINOL [Concomitant]
  4. ENOXAPARIN SODIUM [Suspect]
     Indication: THROMBOSIS
     Route: 058
     Dates: start: 20110622
  5. LEVOTHYROXINE SODIUM [Concomitant]
  6. ISOSORBIDE DINITRATE [Concomitant]
  7. CALCIUM/COLECALCIFEROL [Concomitant]
  8. EMBOLEX [Suspect]
     Indication: THROMBOSIS
     Route: 058
     Dates: start: 20110525, end: 20110621
  9. OMEPRAZOLE [Concomitant]
  10. LACTULOSE [Concomitant]

REACTIONS (3)
  - URETERIC CANCER [None]
  - HAEMORRHAGE URINARY TRACT [None]
  - HAEMATURIA [None]
